FAERS Safety Report 18185623 (Version 1)
Quarter: 2020Q3

REPORT INFORMATION
  Report Type: Report from Study
  Country: None (occurrence: ES)
  Receive Date: 20200824
  Receipt Date: 20200824
  Transmission Date: 20201103
  Serious: Yes (Hospitalization)
  Sender: FDA-Public Use
  Company Number: ES-MDD US OPERATIONS-MDD202008-001662

PATIENT

DRUGS (3)
  1. SAFINAMIDE [Suspect]
     Active Substance: SAFINAMIDE
     Indication: PARKINSON^S DISEASE
  2. SAFINAMIDE [Suspect]
     Active Substance: SAFINAMIDE
  3. LEVODOPA [Concomitant]
     Active Substance: LEVODOPA
     Indication: PARKINSON^S DISEASE
     Dosage: NOT PROVIDED

REACTIONS (1)
  - Hyponatraemia [Unknown]
